FAERS Safety Report 18902475 (Version 8)
Quarter: 2025Q2

REPORT INFORMATION
  Report Type: Spontaneous
  Country: BR (occurrence: BR)
  Receive Date: 20210216
  Receipt Date: 20250610
  Transmission Date: 20250716
  Serious: Yes (Hospitalization, Disabling, Other)
  Sender: BIOMARIN
  Company Number: BR-BIOMARINAP-BR-2021-135024

PATIENT

DRUGS (2)
  1. LARONIDASE [Suspect]
     Active Substance: LARONIDASE
     Indication: Mucopolysaccharidosis I
     Dosage: 3 DF, QW (VIALS)
     Route: 041
     Dates: start: 20190624
  2. LARONIDASE [Suspect]
     Active Substance: LARONIDASE
     Route: 041

REACTIONS (19)
  - Seizure [Unknown]
  - Cardiac arrest [Recovering/Resolving]
  - Hydrocephalus [Recovering/Resolving]
  - Immobile [Recovering/Resolving]
  - Bedridden [Recovering/Resolving]
  - Pneumonia [Recovering/Resolving]
  - Influenza [Recovering/Resolving]
  - Diarrhoea [Recovering/Resolving]
  - Pyrexia [Recovering/Resolving]
  - Muscular weakness [Unknown]
  - Mobility decreased [Unknown]
  - Gait inability [Recovering/Resolving]
  - Weight decreased [Recovering/Resolving]
  - Influenza [Unknown]
  - Asthma [Unknown]
  - Wheezing [Unknown]
  - Chest X-ray abnormal [Unknown]
  - Speech disorder [Recovering/Resolving]
  - Product dose omission issue [Unknown]

NARRATIVE: CASE EVENT DATE: 20210101
